FAERS Safety Report 8943663 (Version 2)
Quarter: 2012Q4

REPORT INFORMATION
  Report Type: 
  Country: JP (occurrence: JP)
  Receive Date: 20121203
  Receipt Date: 20121207
  Transmission Date: 20130627
  Serious: Yes (Hospitalization, Other)
  Sender: FDA-Public Use
  Company Number: JP-OTSUKA-JP-2012-16313

PATIENT
  Age: 60 Year
  Sex: Male
  Weight: 85 kg

DRUGS (16)
  1. SAMSCA [Suspect]
     Indication: FLUID RETENTION
     Dosage: 7.5 Mg milligram(s), qd
     Route: 048
     Dates: start: 20120807, end: 20120907
  2. NU-LOTAN [Concomitant]
     Route: 048
  3. DIART [Concomitant]
     Route: 048
  4. EQUA [Concomitant]
     Route: 048
  5. ARTIST [Concomitant]
     Route: 048
  6. SELARA [Concomitant]
     Route: 048
  7. ARGAMATE [Concomitant]
     Route: 048
  8. ARGAMATE [Concomitant]
     Route: 048
  9. FEBURIC [Concomitant]
     Route: 048
  10. KREMEZIN [Concomitant]
     Route: 048
  11. LIPITOR [Concomitant]
     Route: 048
  12. PURSENNID [Concomitant]
     Route: 048
  13. EURODIN [Concomitant]
     Route: 048
  14. CALONAL [Concomitant]
     Route: 048
  15. HUMULIN R [Concomitant]
     Route: 042
  16. LASIX [Concomitant]
     Route: 042

REACTIONS (3)
  - Platelet count decreased [Recovered/Resolved]
  - Fibrin D dimer increased [Unknown]
  - Dehydration [Unknown]
